FAERS Safety Report 8268839-2 (Version None)
Quarter: 2012Q2

REPORT INFORMATION
  Report Type: 
  Country: None (occurrence: None)
  Receive Date: 20120409
  Receipt Date: 20120409
  Transmission Date: 20120825
  Serious: Yes (Other)
  Sender: FDA-Public Use
  Company Number: None

PATIENT
  Age: 66 Year
  Sex: Male
  Weight: 88.45 kg

DRUGS (1)
  1. CHLORHEXIDINE GLUCONATE [Suspect]
     Indication: ORAL SURGERY
     Dosage: 15 ML
     Route: 048
     Dates: start: 20090901, end: 20090905

REACTIONS (2)
  - AGEUSIA [None]
  - DYSGEUSIA [None]
